FAERS Safety Report 22031686 (Version 1)
Quarter: 2023Q1

REPORT INFORMATION
  Report Type: Spontaneous
  Country: NO (occurrence: NO)
  Receive Date: 20230224
  Receipt Date: 20230224
  Transmission Date: 20230418
  Serious: Yes (Death, Hospitalization)
  Sender: FDA-Public Use
  Company Number: None

PATIENT
  Age: 80 Year
  Sex: Male

DRUGS (4)
  1. PREDNISOLONE [Suspect]
     Active Substance: PREDNISOLONE
     Indication: Colitis
     Dosage: HIGH DOSE.
     Dates: start: 202209, end: 20221027
  2. OPDIVO [Suspect]
     Active Substance: NIVOLUMAB
     Indication: Malignant melanoma
     Dates: start: 20220225, end: 20220325
  3. INFLIXIMAB [Suspect]
     Active Substance: INFLIXIMAB
     Indication: Colitis
     Dosage: ADMINISTERED AS TWO DOSES OF 10 MG/KG IN /SEP/2022.
     Dates: start: 20220901, end: 20220930
  4. CEFOTAXIME [Concomitant]
     Active Substance: CEFOTAXIME SODIUM
     Indication: Bacterial infection
     Dates: start: 20221030

REACTIONS (3)
  - Pancreatitis necrotising [Fatal]
  - Pneumonia fungal [Fatal]
  - Fat necrosis [Fatal]

NARRATIVE: CASE EVENT DATE: 20220101
